FAERS Safety Report 4766535-7 (Version None)
Quarter: 2005Q3

REPORT INFORMATION
  Report Type: 
  Country: None (occurrence: None)
  Receive Date: 20050909
  Receipt Date: 20050829
  Transmission Date: 20060218
  Serious: Yes (Other)
  Sender: FDA-Public Use
  Company Number: 2005JP001694

PATIENT
  Age: 32 Year
  Sex: Male

DRUGS (2)
  1. PROGRAF [Suspect]
     Indication: RENAL TRANSPLANT
     Dates: start: 19950201
  2. AZATHIOPRINE [Suspect]
     Dates: start: 19950201

REACTIONS (5)
  - BONE MARROW DEPRESSION [None]
  - MULTIPLE MYELOMA [None]
  - PANCYTOPENIA [None]
  - RENAL DISORDER [None]
  - VIRAL INFECTION [None]
